FAERS Safety Report 8397915-9 (Version None)
Quarter: 2012Q2

REPORT INFORMATION
  Report Type: 
  Country: None (occurrence: None)
  Receive Date: 20120524
  Receipt Date: 20120509
  Transmission Date: 20120825
  Serious: Yes (Other)
  Sender: FDA-Public Use
  Company Number: JP-2012-14656

PATIENT
  Age: 80 Year
  Sex: Male
  Weight: 96 kg

DRUGS (11)
  1. LASIX [Concomitant]
  2. CARELOAD LA (BERAPROST SODIUM) [Concomitant]
  3. DIART (AZOSEMIDE) [Concomitant]
  4. SAMSCA [Suspect]
     Indication: FLUID RETENTION
     Dosage: 15 MG MILLIGRAM(S), QPM, ORAL
     Route: 048
     Dates: start: 20120130, end: 20120130
  5. LASIX [Concomitant]
  6. URINORM (ENZBROMARONE) [Concomitant]
  7. REMEZIN (CHARCOAL, ACTIVATED) [Concomitant]
  8. REVATIO [Concomitant]
  9. INDAPAMIDE [Concomitant]
  10. CARVEDILOL [Concomitant]
  11. HANP (CARPERITIDE) [Concomitant]

REACTIONS (5)
  - HAEMOGLOBIN DECREASED [None]
  - VENTRICULAR TACHYCARDIA [None]
  - THIRST [None]
  - BLOOD UREA INCREASED [None]
  - RED BLOOD CELL COUNT DECREASED [None]
